FAERS Safety Report 26185082 (Version 2)
Quarter: 2025Q4

REPORT INFORMATION
  Report Type: Spontaneous
  Country: JP (occurrence: JP)
  Receive Date: 20251222
  Receipt Date: 20251230
  Transmission Date: 20260117
  Serious: Yes (Other)
  Sender: TAKEDA
  Company Number: JP-teijin-202505721_FE_P_1

PATIENT
  Age: 59 Year
  Sex: Male

DRUGS (1)
  1. FEBUXOSTAT [Suspect]
     Active Substance: FEBUXOSTAT
     Indication: Product used for unknown indication
     Dosage: UNK

REACTIONS (5)
  - Organising pneumonia [Unknown]
  - Neutropenia [Recovered/Resolved]
  - Tubulointerstitial nephritis [Unknown]
  - Cellulitis [Recovering/Resolving]
  - Phospholipidosis [Unknown]
